FAERS Safety Report 4854516-4 (Version None)
Quarter: 2005Q4

REPORT INFORMATION
  Report Type: 
  Country: None (occurrence: None)
  Receive Date: 20051213
  Receipt Date: 20051130
  Transmission Date: 20060501
  Serious: Yes (Death)
  Sender: FDA-Public Use
  Company Number: 2005163864

PATIENT
  Age: 53 Year
  Sex: Male

DRUGS (5)
  1. VORICONAZOLE (VORICONAZOLE) [Suspect]
  2. PHENOXYMETHYLPENICILLIN [Concomitant]
  3. COTRIM [Concomitant]
  4. VALACICLOVIR (VALACICLOVIR HYDROCHLORIDE) [Concomitant]
  5. VASPOFUNGIN ACETATE(CASPOFUNGIN ACETATE) [Concomitant]

REACTIONS (4)
  - ASPERGILLOSIS [None]
  - CEREBRAL DISORDER [None]
  - MUCORMYCOSIS [None]
  - NERVOUS SYSTEM DISORDER [None]
